FAERS Safety Report 19068693 (Version 1)
Quarter: 2021Q1

REPORT INFORMATION
  Report Type: Spontaneous
  Country: US (occurrence: US)
  Receive Date: 20210329
  Receipt Date: 20210329
  Transmission Date: 20210420
  Serious: Yes (Life-Threatening, Hospitalization)
  Sender: FDA-Public Use
  Company Number: US-TEVA-2021-US-1893809

PATIENT
  Age: 48 Year
  Sex: Male

DRUGS (1)
  1. BUPROPION. [Suspect]
     Active Substance: BUPROPION
     Indication: SUICIDE ATTEMPT
     Dosage: 90 EXTENDED?RELEASE TABLETS
     Route: 048

REACTIONS (7)
  - Electrocardiogram QT prolonged [Recovering/Resolving]
  - Status epilepticus [Recovering/Resolving]
  - Brain stem syndrome [Recovering/Resolving]
  - Suicide attempt [Unknown]
  - Hypotension [Unknown]
  - Chest discomfort [Recovering/Resolving]
  - Intentional overdose [Unknown]
